FAERS Safety Report 8131802-6 (Version None)
Quarter: 2012Q1

REPORT INFORMATION
  Report Type: 
  Country: None (occurrence: None)
  Receive Date: 20120208
  Receipt Date: 20120131
  Transmission Date: 20120608
  Serious: Yes (Hospitalization, Other)
  Sender: FDA-Public Use
  Company Number: ADR-2012-00255

PATIENT
  Age: 19 Year
  Sex: Female

DRUGS (2)
  1. BACLOFEN [Suspect]
     Indication: SPINAL CORD INJURY
  2. BACLOFEN [Suspect]
     Indication: MUSCLE SPASTICITY

REACTIONS (3)
  - INCISION SITE COMPLICATION [None]
  - IMPLANT SITE EROSION [None]
  - DEVICE LEAKAGE [None]
